FAERS Safety Report 10638292 (Version 4)
Quarter: 2014Q4

REPORT INFORMATION
  Report Type: Spontaneous
  Country: JP (occurrence: JP)
  Receive Date: 20141208
  Receipt Date: 20141224
  Transmission Date: 20150529
  Serious: Yes (Hospitalization, Other)
  Sender: FDA-Public Use
  Company Number: JP-GLAXOSMITHKLINE-JP2014JPN029347

PATIENT
  Age: 87 Year
  Sex: Female
  Weight: 53 kg

DRUGS (9)
  1. LENDORMIN [Concomitant]
     Active Substance: BROTIZOLAM
     Dosage: 0.25 MG, QD
     Dates: start: 20140906
  2. LAMICTAL [Suspect]
     Active Substance: LAMOTRIGINE
     Indication: BIPOLAR DISORDER
     Dosage: 25 MG, QOD
     Route: 048
     Dates: start: 20141020, end: 20141103
  3. LANDSEN [Concomitant]
     Active Substance: CLONAZEPAM
     Dosage: 1 MG, QD
     Dates: start: 20141117
  4. LAMICTAL [Suspect]
     Active Substance: LAMOTRIGINE
     Dosage: 25 MG, QD
     Route: 048
     Dates: start: 20141104, end: 20141117
  5. LANDSEN [Concomitant]
     Active Substance: CLONAZEPAM
     Dosage: 0.5 MG, BID
     Dates: start: 20141110, end: 20141116
  6. QUETIAPINE [Concomitant]
     Active Substance: QUETIAPINE
     Indication: DEPRESSED MOOD
     Dosage: 25 MG, QD
     Dates: start: 20140906
  7. DEPAKENE [Concomitant]
     Active Substance: VALPROIC ACID
     Dosage: 400 MG, QD
     Dates: start: 20140906
  8. BENZALIN [Concomitant]
     Active Substance: NITRAZEPAM
     Dosage: 5 MG, QD
     Dates: start: 20141104
  9. TRAZODONE [Concomitant]
     Active Substance: TRAZODONE HYDROCHLORIDE
     Dosage: 50 MG, QD

REACTIONS (14)
  - Rash generalised [Recovered/Resolved]
  - Erythema [Unknown]
  - Pneumonia [Recovered/Resolved]
  - Delirium [Recovered/Resolved]
  - Gait disturbance [Unknown]
  - Abnormal behaviour [Unknown]
  - Oral mucosal eruption [Unknown]
  - Pruritus [Unknown]
  - Respiratory disorder [Unknown]
  - Drug eruption [Not Recovered/Not Resolved]
  - Rash papular [Unknown]
  - Sleep disorder [Unknown]
  - White blood cell count increased [Unknown]
  - Oral mucosal erythema [Unknown]

NARRATIVE: CASE EVENT DATE: 20141117
